FAERS Safety Report 7281408-6 (Version None)
Quarter: 2011Q1

REPORT INFORMATION
  Report Type: 
  Country: None (occurrence: None)
  Receive Date: 20110208
  Receipt Date: 20110130
  Transmission Date: 20110831
  Serious: Yes (Hospitalization)
  Sender: FDA-Public Use
  Company Number: US-ELI_LILLY_AND_COMPANY-US201101007432

PATIENT
  Sex: Female
  Weight: 151.02 kg

DRUGS (2)
  1. EFFIENT [Suspect]
     Dates: start: 20110105, end: 20110125
  2. EFFIENT [Suspect]
     Dates: start: 20110127

REACTIONS (1)
  - CHOLELITHIASIS [None]
